FAERS Safety Report 4660064-7 (Version None)
Quarter: 2005Q2

REPORT INFORMATION
  Report Type: 
  Country: None (occurrence: None)
  Receive Date: 20050512
  Receipt Date: 20041101
  Transmission Date: 20051028
  Serious: No
  Sender: FDA-Public Use
  Company Number: US-GLAXOSMITHKLINE-A0532035A

PATIENT
  Age: 60 Year
  Sex: Female

DRUGS (9)
  1. RELAFEN [Suspect]
     Indication: RHEUMATOID ARTHRITIS
     Dosage: 750MG PER DAY
     Route: 048
     Dates: start: 20041014, end: 20041029
  2. SYNTHROID [Concomitant]
  3. INDERAL [Concomitant]
  4. ZYRTEC [Concomitant]
  5. HYDROCHLOROTHIAZIDE [Concomitant]
  6. METRONIDAZOLE [Concomitant]
  7. VITAMINS [Concomitant]
  8. ACTONEL [Concomitant]
  9. CALCIUM GLUCONATE [Concomitant]

REACTIONS (2)
  - DYSPNOEA [None]
  - FLUSHING [None]
